FAERS Safety Report 25445018 (Version 1)
Quarter: 2025Q2

REPORT INFORMATION
  Report Type: Spontaneous
  Country: CZ (occurrence: CZ)
  Receive Date: 20250617
  Receipt Date: 20250617
  Transmission Date: 20250717
  Serious: Yes (Hospitalization, Other)
  Sender: RANBAXY
  Company Number: CZ-SUN PHARMACEUTICAL INDUSTRIES INC-2025RR-512578

PATIENT
  Age: 59 Year
  Sex: Female

DRUGS (6)
  1. THEOPHYLLINE [Suspect]
     Active Substance: THEOPHYLLINE
     Indication: Dyspnoea
     Dosage: 600 MILLIGRAM, DAILY
     Route: 065
  2. THEOPHYLLINE [Suspect]
     Active Substance: THEOPHYLLINE
     Route: 048
  3. ACETAMINOPHEN\TRAMADOL [Suspect]
     Active Substance: ACETAMINOPHEN\TRAMADOL
     Indication: Product used for unknown indication
     Route: 065
  4. TRAMADOL [Suspect]
     Active Substance: TRAMADOL
     Indication: Product used for unknown indication
     Route: 065
  5. CLONAZEPAM [Concomitant]
     Active Substance: CLONAZEPAM
     Indication: Asthenia
     Route: 065
  6. TIOTROPIUM [Concomitant]
     Active Substance: TIOTROPIUM
     Indication: Asthenia
     Dosage: 18 MICROGRAM, DAILY

REACTIONS (8)
  - Toxicity to various agents [Unknown]
  - Drug abuse [Unknown]
  - Sinus tachycardia [Unknown]
  - Haematemesis [Unknown]
  - Palpitations [Unknown]
  - Tremor [Unknown]
  - Vomiting [Unknown]
  - Agitation [Unknown]
